FAERS Safety Report 9113685 (Version 2)
Quarter: 2013Q1

REPORT INFORMATION
  Report Type: Spontaneous
  Country: DK (occurrence: IT)
  Receive Date: 20130208
  Receipt Date: 20130308
  Transmission Date: 20140127
  Serious: Yes (Hospitalization)
  Sender: FDA-Public Use
  Company Number: IT-FRI-1000042532

PATIENT
  Age: 52 Year
  Sex: Female

DRUGS (2)
  1. CITALOPRAM [Suspect]
     Indication: SUICIDE ATTEMPT
     Dosage: 560 MG
     Route: 048
     Dates: start: 20130119, end: 20130119
  2. VATRAN [Suspect]
     Indication: SUICIDE ATTEMPT
     Dosage: 250 MG
     Route: 048
     Dates: start: 20130119, end: 20130119

REACTIONS (2)
  - Suicide attempt [Recovering/Resolving]
  - Sopor [Recovering/Resolving]
